FAERS Safety Report 5346547-5 (Version None)
Quarter: 2007Q2

REPORT INFORMATION
  Report Type: 
  Country: None (occurrence: None)
  Receive Date: 20070430
  Receipt Date: 20070201
  Transmission Date: 20071010
  Serious: No
  Sender: FDA-Public Use
  Company Number: CLOF-10446

PATIENT
  Age: 65 Year
  Sex: Female

DRUGS (4)
  1. CLOLAR [Suspect]
     Indication: ACUTE MYELOID LEUKAEMIA RECURRENT
     Dosage: 30 MG/M2 QD X 5 IV
     Route: 042
     Dates: start: 20070129, end: 20070202
  2. ALLOPURINOL [Concomitant]
  3. ESTRADIOL [Concomitant]
  4. PAROXETINE [Concomitant]

REACTIONS (2)
  - ALANINE AMINOTRANSFERASE INCREASED [None]
  - ASPARTATE AMINOTRANSFERASE INCREASED [None]
